FAERS Safety Report 8018796-9 (Version None)
Quarter: 2011Q4

REPORT INFORMATION
  Report Type: 
  Country: None (occurrence: None)
  Receive Date: 20111227
  Receipt Date: 20111208
  Transmission Date: 20120403
  Serious: Yes (Hospitalization, Other)
  Sender: FDA-Public Use
  Company Number: EU-2011-10203

PATIENT
  Age: 41 Year
  Sex: Female

DRUGS (3)
  1. CERAZETTE (DESOGESTREL) [Concomitant]
  2. NASONEX [Concomitant]
  3. SAMSCA [Suspect]
     Indication: HYPONATRAEMIA
     Dosage: 15 MG MILLIGRAM(S), QD, ORAL
     Route: 048
     Dates: start: 20111023, end: 20111023

REACTIONS (2)
  - RAPID CORRECTION OF HYPONATRAEMIA [None]
  - HYPERNATRAEMIA [None]
